FAERS Safety Report 18716939 (Version 1)
Quarter: 2021Q1

REPORT INFORMATION
  Report Type: Spontaneous
  Country: US (occurrence: US)
  Receive Date: 20210108
  Receipt Date: 20210108
  Transmission Date: 20210419
  Serious: No
  Sender: FDA-Public Use
  Company Number: US-ASTRAZENECA-2020SF67878

PATIENT
  Age: 25119 Day
  Sex: Female

DRUGS (1)
  1. BYDUREON BCISE [Suspect]
     Active Substance: EXENATIDE
     Indication: TYPE 2 DIABETES MELLITUS
     Route: 058
     Dates: start: 2020

REACTIONS (5)
  - Intentional device misuse [Unknown]
  - Injection site pain [Unknown]
  - Device delivery system issue [Unknown]
  - Injection site bruising [Unknown]
  - Device leakage [Unknown]

NARRATIVE: CASE EVENT DATE: 20201206
